FAERS Safety Report 8989734 (Version 2)
Quarter: 2013Q1

REPORT INFORMATION
  Report Type: Spontaneous
  Country: US (occurrence: US)
  Receive Date: 20121228
  Receipt Date: 20130304
  Transmission Date: 20140127
  Serious: Yes (Other)
  Sender: FDA-Public Use
  Company Number: US-BAYER-2012-135527

PATIENT
  Age: 73 Year
  Sex: Male
  Weight: 80.73 kg

DRUGS (4)
  1. BAYER ASPIRIN REGIMEN ADULT LOW STRENGTH [Suspect]
     Indication: ISCHAEMIC HEART DISEASE PROPHYLAXIS
     Dosage: 2 DF, QD
     Route: 048
     Dates: start: 1992
  2. BAYER ADVANCED ASPIRIN EXTRA STRENGTH [Concomitant]
     Dosage: 500 MG, UNK
  3. HEART MEDICATION (NOS) [Concomitant]
  4. MULTI-VITAMIN [Concomitant]

REACTIONS (1)
  - Cardiac failure [None]
